FAERS Safety Report 10377551 (Version 1)
Quarter: 2014Q3

REPORT INFORMATION
  Report Type: Spontaneous
  Country: US (occurrence: None)
  Receive Date: 20140811
  Receipt Date: 20140811
  Transmission Date: 20150326
  Serious: Yes (Hospitalization)
  Sender: FDA-Public Use
  Company Number: None

PATIENT
  Age: 78 Year
  Sex: Female
  Weight: 98.9 kg

DRUGS (12)
  1. FENTANYL TRANSDERMAL SYSTEM [Concomitant]
     Active Substance: FENTANYL
  2. HUMALOG [Concomitant]
     Active Substance: INSULIN LISPRO
  3. LEVEMIR [Concomitant]
     Active Substance: INSULIN DETEMIR
  4. PREDNISONE. [Concomitant]
     Active Substance: PREDNISONE
  5. LEFLUNOMIDE. [Suspect]
     Active Substance: LEFLUNOMIDE
     Indication: RHEUMATOID ARTHRITIS
     Dosage: 1 TABLET QD ORAL
     Route: 048
     Dates: start: 20140501, end: 20140807
  6. COUMADIN [Concomitant]
     Active Substance: WARFARIN SODIUM
  7. KEFLEX [Concomitant]
     Active Substance: CEPHALEXIN
  8. VICODIN [Concomitant]
     Active Substance: ACETAMINOPHEN\HYDROCODONE BITARTRATE
  9. LISINOPRIL. [Concomitant]
     Active Substance: LISINOPRIL
  10. SPIRONOLACTONE. [Concomitant]
     Active Substance: SPIRONOLACTONE
  11. FOSAMAX [Concomitant]
     Active Substance: ALENDRONATE SODIUM
  12. LIDOCAINE PATCH [Concomitant]
     Active Substance: LIDOCAINE

REACTIONS (16)
  - Pain [None]
  - Nausea [None]
  - Hypoaesthesia [None]
  - Hypokinesia [None]
  - Headache [None]
  - Neuropathy peripheral [None]
  - Paraesthesia [None]
  - Hyperhidrosis [None]
  - Decreased activity [None]
  - Abdominal pain [None]
  - Polyuria [None]
  - Diarrhoea [None]
  - Polydipsia [None]
  - Cough [None]
  - Chest pain [None]
  - Asthenia [None]

NARRATIVE: CASE EVENT DATE: 20140805
